FAERS Safety Report 8159817-2 (Version None)
Quarter: 2012Q1

REPORT INFORMATION
  Report Type: 
  Country: None (occurrence: None)
  Receive Date: 20120223
  Receipt Date: 20120215
  Transmission Date: 20120608
  Serious: Yes (Hospitalization)
  Sender: FDA-Public Use
  Company Number: US-BAYER-2012-016728

PATIENT
  Age: 26 Year
  Sex: Female
  Weight: 63.7 kg

DRUGS (10)
  1. CRYSELLE [Concomitant]
     Indication: MENSTRUATION IRREGULAR
     Dosage: UNK
     Dates: start: 20101101
  2. AMITIZA [Concomitant]
  3. FEXOFENADINE [Concomitant]
  4. BEYAZ [Suspect]
     Indication: MENSTRUATION IRREGULAR
     Dosage: UNK
     Route: 048
     Dates: start: 20110101, end: 20110306
  5. ALLEGRA [Concomitant]
  6. ASPIRIN [Concomitant]
  7. YAZ [Suspect]
     Indication: MENSTRUATION IRREGULAR
     Dosage: 1 DF, QD
     Route: 048
     Dates: start: 20100801
  8. TRUSOPT [Concomitant]
  9. DROSPIRENONE AND ETHINYL ESTRADIOL [Suspect]
     Indication: MENSTRUATION IRREGULAR
     Dosage: UNK
     Dates: start: 20101020
  10. PERCOCET [Concomitant]

REACTIONS (1)
  - DEEP VEIN THROMBOSIS [None]
